FAERS Safety Report 18598430 (Version 1)
Quarter: 2020Q4

REPORT INFORMATION
  Report Type: Report from Study
  Country: US (occurrence: US)
  Receive Date: 20201210
  Receipt Date: 20201210
  Transmission Date: 20210114
  Serious: Yes (Hospitalization)
  Sender: FDA-Public Use
  Company Number: US-ROCHE-2725501

PATIENT
  Age: 39 Year
  Sex: Female
  Weight: 65.9 kg

DRUGS (4)
  1. TRASTUZUMAB. [Suspect]
     Active Substance: TRASTUZUMAB
     Indication: INVASIVE BREAST CARCINOMA
     Dosage: 6MG/KG IV ON DAYS 1 AND 22; 8MG/KG IV C1D1 ONLY, DATE OF TREATMENT: 08-JAN-2020
     Route: 041
     Dates: start: 20190828, end: 20200108
  2. PERTUZUMAB. [Suspect]
     Active Substance: PERTUZUMAB
     Indication: INVASIVE BREAST CARCINOMA
     Dosage: 420MG IV ON DAYS 1 AND 22; 840MG IV C1D1 ONLY, DATE OF TREATMENT: 08-JAN-2020
     Route: 042
     Dates: start: 20190828, end: 20200108
  3. BLINDED ATEZOLIZUMAB [Suspect]
     Active Substance: ATEZOLIZUMAB
     Indication: INVASIVE BREAST CARCINOMA
     Dosage: ON DAYS 1 AND 22, DATE OF TREATMENT: 08-JAN-2020
     Route: 041
     Dates: start: 20190828, end: 20200108
  4. PACLITAXEL. [Suspect]
     Active Substance: PACLITAXEL
     Indication: INVASIVE BREAST CARCINOMA
     Dosage: 80MG/M2 IV ON DAYS 1, 8, 15, 22, 29, AND 36, DATE OF TREATMENT: 08-JAN-2020
     Route: 042
     Dates: start: 20190828, end: 20200108

REACTIONS (1)
  - Cholecystitis [Recovered/Resolved with Sequelae]

NARRATIVE: CASE EVENT DATE: 20200110
